FAERS Safety Report 14776190 (Version 2)
Quarter: 2018Q2

REPORT INFORMATION
  Report Type: Spontaneous
  Country: SK (occurrence: SK)
  Receive Date: 20180418
  Receipt Date: 20180516
  Transmission Date: 20180711
  Serious: Yes (Other)
  Sender: FDA-Public Use
  Company Number: SK-TEVA-2018-SK-883437

PATIENT
  Age: 70 Year
  Sex: Female

DRUGS (2)
  1. NAB-PACLITAXEL [Suspect]
     Active Substance: PACLITAXEL
     Indication: PANCREATIC CARCINOMA METASTATIC
     Route: 042
     Dates: start: 20160905
  2. GEMCITABINE [Suspect]
     Active Substance: GEMCITABINE\GEMCITABINE HYDROCHLORIDE
     Indication: PANCREATIC CARCINOMA METASTATIC
     Route: 042
     Dates: start: 20160905

REACTIONS (4)
  - Pancytopenia [Recovering/Resolving]
  - Leukopenia [Unknown]
  - Thrombocytopenia [Recovering/Resolving]
  - Haematotoxicity [Recovering/Resolving]
